FAERS Safety Report 19028346 (Version 1)
Quarter: 2021Q1

REPORT INFORMATION
  Report Type: Spontaneous
  Country: US (occurrence: US)
  Receive Date: 20210318
  Receipt Date: 20210318
  Transmission Date: 20210420
  Serious: No
  Sender: FDA-Public Use
  Company Number: US-ELI_LILLY_AND_COMPANY-US202103002524

PATIENT
  Sex: Female

DRUGS (1)
  1. BAMLANIVIMAB 700MG [Suspect]
     Active Substance: BAMLANIVIMAB
     Indication: COVID-19
     Dosage: 700 MG, SINGLE
     Route: 042
     Dates: start: 20201204, end: 20201204

REACTIONS (6)
  - Erythema [Unknown]
  - Arthralgia [Unknown]
  - Inflammation [Unknown]
  - Pruritus [Recovered/Resolved]
  - Rash [Unknown]
  - Burning sensation [Unknown]
